FAERS Safety Report 9684682 (Version 2)
Quarter: 2013Q4

REPORT INFORMATION
  Report Type: Spontaneous
  Country: US (occurrence: US)
  Receive Date: 20131112
  Receipt Date: 20131112
  Transmission Date: 20140711
  Serious: Yes (Other)
  Sender: FDA-Public Use
  Company Number: US-TMC-CABO-13003250

PATIENT
  Sex: Male

DRUGS (11)
  1. COMETRIQ [Suspect]
     Indication: THYROID CANCER
     Dosage: 140 MG, QD
     Route: 048
     Dates: start: 20130130, end: 2013
  2. COMETRIQ [Suspect]
     Dosage: 120 MG, UNK
     Dates: start: 2013, end: 2013
  3. COMETRIQ [Suspect]
     Dosage: 140 MG, QD
     Dates: start: 2013
  4. LEVOTHYROXINE [Concomitant]
  5. KLOR-CON [Concomitant]
  6. MAGNESIUM [Concomitant]
  7. WARFARIN [Concomitant]
  8. AMLODIPINE [Concomitant]
  9. CALCIUM [Concomitant]
  10. LOMOTIL [Concomitant]
  11. LOPERAMIDE [Concomitant]

REACTIONS (4)
  - Cardiomegaly [Unknown]
  - Metastases to lung [Recovered/Resolved]
  - Diarrhoea [Unknown]
  - Drug dose omission [Unknown]
